FAERS Safety Report 11143051 (Version 1)
Quarter: 2015Q2

REPORT INFORMATION
  Report Type: Spontaneous
  Country: FR (occurrence: FR)
  Receive Date: 20150528
  Receipt Date: 20150528
  Transmission Date: 20150821
  Serious: Yes (Other)
  Sender: FDA-Public Use
  Company Number: FR-ROCHE-1584096

PATIENT
  Age: 75 Year
  Sex: Female

DRUGS (2)
  1. MABTHERA [Suspect]
     Active Substance: RITUXIMAB
     Indication: GRANULOMATOSIS WITH POLYANGIITIS
     Route: 065
     Dates: start: 20150522
  2. ZECLAR [Concomitant]
     Active Substance: CLARITHROMYCIN

REACTIONS (4)
  - Tachycardia [Recovered/Resolved]
  - Palpitations [Recovered/Resolved]
  - Electrocardiogram QT prolonged [Unknown]
  - Electrocardiogram ST segment depression [Unknown]

NARRATIVE: CASE EVENT DATE: 20150522
